FAERS Safety Report 8400178 (Version 2)
Quarter: 2013Q1

REPORT INFORMATION
  Report Type: Spontaneous
  Country: US (occurrence: US)
  Receive Date: 20120210
  Receipt Date: 20130219
  Transmission Date: 20140127
  Serious: No
  Sender: FDA-Public Use
  Company Number: US-BRISTOL-MYERS SQUIBB COMPANY-16262198

PATIENT
  Age: 77 Year
  Sex: Female

DRUGS (1)
  1. ORENCIA [Suspect]
     Dosage: INFUSION:11OCT11,16NOV11

REACTIONS (8)
  - Hypertension [Unknown]
  - Headache [Unknown]
  - Bone pain [Unknown]
  - Alopecia [Unknown]
  - Pruritus [Unknown]
  - Breast pain [Unknown]
  - Tinea pedis [Unknown]
  - Anaemia [Unknown]
